FAERS Safety Report 7842940-7 (Version None)
Quarter: 2011Q4

REPORT INFORMATION
  Report Type: 
  Country: None (occurrence: None)
  Receive Date: 20111025
  Receipt Date: 20111012
  Transmission Date: 20120403
  Serious: Yes (Other)
  Sender: FDA-Public Use
  Company Number: US-ELI_LILLY_AND_COMPANY-US201110003232

PATIENT
  Sex: Male

DRUGS (11)
  1. MULTI-VITAMIN [Concomitant]
  2. SPIRIVA [Concomitant]
     Dosage: 18 UG, QD
     Route: 055
  3. XIFAXAN [Concomitant]
     Dosage: 400 MG, BID
  4. LASIX                                   /USA/ [Concomitant]
     Dosage: 40 MG, BID
  5. SPIRONOLACTONE [Concomitant]
     Dosage: 50 MG, QD
  6. CALCIUM CARBONATE + VITAMIN D [Concomitant]
     Dosage: 500 MG, QD
  7. LACTULOSE [Concomitant]
     Dosage: 30 ML, UNK
  8. SYMBICORT [Concomitant]
     Dosage: 2 DF, BID
  9. CYMBALTA [Suspect]
     Indication: DEPRESSION
     Dosage: 30 MG, QD
     Dates: start: 20110912, end: 20110929
  10. POTASSIUM [Concomitant]
     Dosage: 10 MEQ, BID
  11. ASCORBIC ACID [Concomitant]

REACTIONS (5)
  - BLOOD BILIRUBIN INCREASED [None]
  - JAUNDICE [None]
  - INFLUENZA LIKE ILLNESS [None]
  - PYREXIA [None]
  - SKIN ODOUR ABNORMAL [None]
